FAERS Safety Report 20479721 (Version 1)
Quarter: 2022Q1

REPORT INFORMATION
  Report Type: Spontaneous
  Country: US (occurrence: None)
  Receive Date: 20220215
  Receipt Date: 20220215
  Transmission Date: 20220424
  Serious: Yes (Hospitalization, Disabling)
  Sender: FDA-Public Use
  Company Number: None

PATIENT
  Age: 59 Year
  Sex: Female

DRUGS (19)
  1. ENVARSUS XR [Suspect]
     Active Substance: TACROLIMUS
     Indication: Heart transplant
     Dosage: FREQUENCY : DAILY;?
     Route: 048
  2. ENVARSUS XR [Suspect]
     Active Substance: TACROLIMUS
     Dosage: FREQUENCY : DAILY;?
     Route: 048
  3. AMLODIPINE [Concomitant]
     Active Substance: AMLODIPINE BESYLATE
  4. ASPIRIN [Concomitant]
  5. CALCIUM CITRATE\CHOLECALCIFEROL [Concomitant]
     Active Substance: CALCIUM CITRATE\CHOLECALCIFEROL
  6. ENVARSUS XR [Concomitant]
  7. FAMOTIDINE [Concomitant]
  8. HYDRALAZINE [Concomitant]
  9. LEVETIRACETAM [Concomitant]
  10. MAGNESIUM GLUCONATE [Concomitant]
     Active Substance: MAGNESIUM GLUCONATE
  11. MELATONIN [Concomitant]
     Active Substance: MELATONIN
  12. MULTIVITAMIN [Concomitant]
  13. MYCOPHENOLATE [Concomitant]
  14. PRAVASTATIN [Concomitant]
  15. VITAMIN C [Concomitant]
  16. VITAMIN E [Concomitant]
  17. TYLENOL [Concomitant]
     Active Substance: ACETAMINOPHEN
  18. TUMS [Concomitant]
  19. ECONAZOLE CREAM [Concomitant]

REACTIONS (2)
  - COVID-19 [None]
  - Toxicity to various agents [None]

NARRATIVE: CASE EVENT DATE: 20220215
